FAERS Safety Report 11294963 (Version 1)
Quarter: 2015Q3

REPORT INFORMATION
  Report Type: Spontaneous
  Country: FR (occurrence: FR)
  Receive Date: 20150723
  Receipt Date: 20150723
  Transmission Date: 20151125
  Serious: Yes (Hospitalization)
  Sender: FDA-Public Use
  Company Number: FR-ROCHE-1611815

PATIENT
  Age: 75 Year
  Sex: Female

DRUGS (11)
  1. AMLOR [Concomitant]
     Active Substance: AMLODIPINE BESYLATE
     Route: 048
  2. SECTRAL 200 [Concomitant]
     Route: 048
  3. DIAZEPAM. [Concomitant]
     Active Substance: DIAZEPAM
     Route: 065
  4. MODOPAR [Concomitant]
     Active Substance: BENSERAZIDE HYDROCHLORIDE\LEVODOPA
     Dosage: 100 MG/ 25 MG
     Route: 065
  5. LANTUS [Concomitant]
     Active Substance: INSULIN GLARGINE
     Route: 058
  6. LEVOTHYROX [Concomitant]
     Active Substance: LEVOTHYROXINE
     Route: 048
  7. KARDEGIC [Concomitant]
     Active Substance: ASPIRIN LYSINE
     Route: 048
  8. DONORMYL [Concomitant]
     Active Substance: DOXYLAMINE SUCCINATE
     Route: 048
  9. DICLOFENAC [Concomitant]
     Active Substance: DICLOFENAC
     Route: 003
     Dates: start: 20150507
  10. PAROXETINE [Concomitant]
     Active Substance: PAROXETINE\PAROXETINE HYDROCHLORIDE
     Dosage: DAILY
     Route: 065
  11. ROCEPHINE [Suspect]
     Active Substance: CEFTRIAXONE SODIUM
     Indication: LUNG INFECTION
     Route: 058
     Dates: start: 20150502, end: 20150507

REACTIONS (1)
  - Drug reaction with eosinophilia and systemic symptoms [Recovered/Resolved]

NARRATIVE: CASE EVENT DATE: 20150504
